FAERS Safety Report 15357371 (Version 1)
Quarter: 2018Q3

REPORT INFORMATION
  Report Type: Spontaneous
  Country: US (occurrence: US)
  Receive Date: 20180830
  Receipt Date: 20180830
  Transmission Date: 20181010
  Serious: Yes (Other)
  Sender: FDA-Public Use
  Company Number: None

PATIENT
  Age: 32 Year
  Sex: Female
  Weight: 67.13 kg

DRUGS (6)
  1. GOAT^S RUE [Concomitant]
  2. LECITHIN [Concomitant]
     Active Substance: LECITHIN
  3. FENUGREEK [Concomitant]
     Active Substance: FENUGREEK SEED
  4. NEXPLANON [Suspect]
     Active Substance: ETONOGESTREL
     Indication: CONTRACEPTION
     Dosage: 1 IMPLANT CONSTANT DIFFUSION GIVEN INTO/UNDER THE SKIN
     Dates: start: 20180820, end: 20180830
  5. MULTIVITAMIN [Concomitant]
     Active Substance: VITAMINS
  6. ANTIFUNGAL SHAMPOO [Concomitant]

REACTIONS (1)
  - Suppressed lactation [None]

NARRATIVE: CASE EVENT DATE: 20180822
